FAERS Safety Report 24533051 (Version 1)
Quarter: 2024Q4

REPORT INFORMATION
  Report Type: Other
  Country: US (occurrence: US)
  Receive Date: 20241022
  Receipt Date: 20241022
  Transmission Date: 20250115
  Serious: Yes (Hospitalization, Other)
  Sender: VISTAPHARM
  Company Number: US-Vista Pharmaceuticals Inc.-2163482

PATIENT
  Age: 76 Year
  Sex: Male
  Weight: 81 kg

DRUGS (6)
  1. SULFAMETHOXAZOLE\TRIMETHOPRIM [Suspect]
     Active Substance: SULFAMETHOXAZOLE\TRIMETHOPRIM
     Indication: Pneumocystis jirovecii pneumonia
  2. PREDNISONE [Concomitant]
     Active Substance: PREDNISONE
  3. VITAMIN C [Concomitant]
     Active Substance: ASCORBIC ACID
  4. METHYLENE BLUE [Concomitant]
     Active Substance: METHYLENE BLUE
  5. ATOVAQUONE [Concomitant]
     Active Substance: ATOVAQUONE
  6. RITUXIMAB [Concomitant]
     Active Substance: RITUXIMAB

REACTIONS (3)
  - Acute kidney injury [Unknown]
  - Product use in unapproved indication [Unknown]
  - Nephropathy toxic [Unknown]
